FAERS Safety Report 15031957 (Version 1)
Quarter: 2018Q2

REPORT INFORMATION
  Report Type: Spontaneous
  Country: US (occurrence: US)
  Receive Date: 20180619
  Receipt Date: 20180619
  Transmission Date: 20180711
  Serious: Yes (Hospitalization, Other)
  Sender: FDA-Public Use
  Company Number: US-MYLANLABS-2018M1042205

PATIENT
  Age: 75 Year
  Sex: Male

DRUGS (2)
  1. TENOFOVIR [Suspect]
     Active Substance: TENOFOVIR
     Indication: CHRONIC HEPATITIS B
     Route: 065
  2. GABAPENTIN. [Concomitant]
     Active Substance: GABAPENTIN
     Indication: ARTHRALGIA
     Route: 065

REACTIONS (5)
  - Metabolic acidosis [Unknown]
  - Glycosuria [Unknown]
  - Proteinuria [Unknown]
  - Fanconi syndrome acquired [Unknown]
  - Osteomalacia [Unknown]
